FAERS Safety Report 13240846 (Version 1)
Quarter: 2017Q1

REPORT INFORMATION
  Report Type: Spontaneous
  Country: US (occurrence: US)
  Receive Date: 20170216
  Receipt Date: 20170216
  Transmission Date: 20170428
  Serious: No
  Sender: FDA-Public Use
  Company Number: US-RELYPSA-RLY2016004283

PATIENT
  Sex: Male

DRUGS (1)
  1. VELTASSA [Suspect]
     Active Substance: PATIROMER
     Indication: PRODUCT USED FOR UNKNOWN INDICATION
     Dosage: 8.4, 1X DAILY
     Route: 065
     Dates: start: 20161118, end: 20161206

REACTIONS (5)
  - Peripheral swelling [Unknown]
  - Lip pain [Unknown]
  - Visual impairment [Unknown]
  - Headache [Unknown]
  - Facial pain [Unknown]

NARRATIVE: CASE EVENT DATE: 2016
